FAERS Safety Report 6186940-4 (Version None)
Quarter: 2009Q2

REPORT INFORMATION
  Report Type: 
  Country: None (occurrence: None)
  Receive Date: 20090512
  Receipt Date: 20090505
  Transmission Date: 20091009
  Serious: Yes (Other)
  Sender: FDA-Public Use
  Company Number: US-AVENTIS-200913917US

PATIENT
  Age: 58 Year
  Sex: Female

DRUGS (3)
  1. LANTUS [Suspect]
     Route: 058
     Dates: start: 20070101
  2. METFORMIN HCL [Concomitant]
     Dosage: DOSE: UNK
  3. ANTIDEPRESSANTS [Concomitant]
     Dosage: DOSE: UNK

REACTIONS (4)
  - BLINDNESS [None]
  - EYE HAEMORRHAGE [None]
  - RETINAL DETACHMENT [None]
  - VISUAL IMPAIRMENT [None]
